FAERS Safety Report 4414924-2 (Version None)
Quarter: 2004Q3

REPORT INFORMATION
  Report Type: 
  Country: None (occurrence: None)
  Receive Date: 20040803
  Receipt Date: 20040803
  Transmission Date: 20050211
  Serious: Yes (Hospitalization, Disabling)
  Sender: FDA-Public Use
  Company Number: None

PATIENT
  Age: 23 Year
  Sex: Female
  Weight: 95.2554 kg

DRUGS (4)
  1. PREDNISONE [Suspect]
     Dosage: DAILY A DOSE PAC ORAL
     Route: 048
  2. SOLU-MEDROL [Suspect]
     Dosage: 125MG ONCE
     Route: 042
  3. DECODON [Concomitant]
  4. INHALED STEROIDS [Concomitant]

REACTIONS (1)
  - ASEPTIC NECROSIS BONE [None]
